FAERS Safety Report 4891833-6 (Version None)
Quarter: 2006Q1

REPORT INFORMATION
  Report Type: 
  Country: None (occurrence: None)
  Receive Date: 20060126
  Receipt Date: 20040810
  Transmission Date: 20060701
  Serious: Yes (Death, Life-Threatening, Hospitalization)
  Sender: FDA-Public Use
  Company Number: FR-BOEHRINGER INGELHEIM PHARMACEUTICALS, INC.-2004-FF-00481FF

PATIENT
  Age: 68 Year
  Sex: Male
  Weight: 92 kg

DRUGS (6)
  1. MICARDIS [Suspect]
     Route: 048
  2. DAONIL [Concomitant]
     Route: 048
  3. HEXAQUINE [Concomitant]
     Route: 048
  4. LIPANTHYL [Concomitant]
     Route: 048
  5. STAGID [Concomitant]
     Route: 048
  6. TANAKAN [Concomitant]
     Route: 048

REACTIONS (3)
  - BLOOD CREATININE INCREASED [None]
  - DERMATITIS EXFOLIATIVE [None]
  - TOXIC SKIN ERUPTION [None]
